FAERS Safety Report 10872568 (Version 1)
Quarter: 2015Q1

REPORT INFORMATION
  Report Type: Spontaneous
  Country: TR (occurrence: TR)
  Receive Date: 20150227
  Receipt Date: 20150227
  Transmission Date: 20150721
  Serious: Yes (Death)
  Sender: FDA-Public Use
  Company Number: TR-CIPLA LTD.-2015TR01353

PATIENT

DRUGS (2)
  1. TEMOZOLOMIDE. [Suspect]
     Active Substance: TEMOZOLOMIDE
     Indication: EWING^S SARCOMA
     Dosage: 100 MG/M2, PER DAY, FOR DAYS 1 TO 5 IN 1ST WEEK
     Route: 048
  2. IRINOTECAN [Suspect]
     Active Substance: IRINOTECAN
     Indication: EWING^S SARCOMA
     Dosage: 20 MG/M2, PER DAY, OVER 1 HOUR FOR 2 WEEKS, DAY 1-5 AND 8-12

REACTIONS (1)
  - Disease progression [Fatal]
